FAERS Safety Report 7764008-0 (Version None)
Quarter: 2011Q3

REPORT INFORMATION
  Report Type: 
  Country: None (occurrence: None)
  Receive Date: 20110921
  Receipt Date: 20110915
  Transmission Date: 20111222
  Serious: Yes (Other)
  Sender: FDA-Public Use
  Company Number: US-PFIZER INC-2011143892

PATIENT
  Sex: Male

DRUGS (1)
  1. CHANTIX [Suspect]
     Indication: SMOKING CESSATION THERAPY
     Dosage: UNK
     Dates: start: 20061006, end: 20071201

REACTIONS (11)
  - MOOD SWINGS [None]
  - LETHARGY [None]
  - DEPRESSION [None]
  - DISTURBANCE IN ATTENTION [None]
  - LAZINESS [None]
  - ABNORMAL DREAMS [None]
  - STRESS [None]
  - RESTLESSNESS [None]
  - NIGHTMARE [None]
  - SUICIDAL IDEATION [None]
  - ANXIETY [None]
